FAERS Safety Report 5277540-9 (Version None)
Quarter: 2007Q1

REPORT INFORMATION
  Report Type: 
  Country: None (occurrence: None)
  Receive Date: 20061214
  Receipt Date: 20060221
  Transmission Date: 20070707
  Serious: Yes (Hospitalization)
  Sender: FDA-Public Use
  Company Number: 06P-163-0325669-00

PATIENT
  Age: 76 Year
  Sex: Male
  Weight: 64.4108 kg

DRUGS (2)
  1. TARKA [Suspect]
     Indication: HYPERTENSION
     Dosage: 240 MG, 1 IN 1 D, PER ORAL
     Route: 048
     Dates: start: 20060111, end: 20060112
  2. AMLODIPINE BESYLATE [Concomitant]

REACTIONS (1)
  - BRADYCARDIA [None]
